FAERS Safety Report 5597336-8 (Version None)
Quarter: 2007Q4

REPORT INFORMATION
  Report Type: 
  Country: None (occurrence: None)
  Receive Date: 20071221
  Receipt Date: 20071018
  Transmission Date: 20080405
  Serious: Yes (Hospitalization)
  Sender: FDA-Public Use
  Company Number: SPV1-2007-04617

PATIENT
  Sex: Male

DRUGS (2)
  1. VYVANSE [Suspect]
     Dates: start: 20070101, end: 20070101
  2. RISPERDAL [Concomitant]

REACTIONS (1)
  - RASH [None]
